FAERS Safety Report 8896299 (Version 1)
Quarter: 2012Q4

REPORT INFORMATION
  Report Type: 
  Country: US (occurrence: None)
  Receive Date: 20121106
  Receipt Date: 20121106
  Transmission Date: 20130627
  Serious: Yes (Hospitalization)
  Sender: FDA-Public Use
  Company Number: None

PATIENT
  Sex: Female
  Weight: 80 kg

DRUGS (4)
  1. CARBOPLATIN [Suspect]
  2. CISPLATIN [Suspect]
  3. PACLITAXEL (TAXOL) [Suspect]
  4. NEULASTA [Suspect]

REACTIONS (7)
  - Rectal haemorrhage [None]
  - Abdominal pain [None]
  - Anaemia [None]
  - Renal impairment [None]
  - Urinary incontinence [None]
  - Faecal incontinence [None]
  - Radiation mucositis [None]
